FAERS Safety Report 14318543 (Version 1)
Quarter: 2017Q4

REPORT INFORMATION
  Report Type: Spontaneous
  Country: US (occurrence: US)
  Receive Date: 20171222
  Receipt Date: 20171222
  Transmission Date: 20180321
  Serious: No
  Sender: FDA-Public Use
  Company Number: US-GLAXOSMITHKLINE-US2017197718

PATIENT
  Age: 65 Year
  Sex: Female

DRUGS (7)
  1. BENLYSTA [Suspect]
     Active Substance: BELIMUMAB
     Indication: PRODUCT USED FOR UNKNOWN INDICATION
     Dosage: 460 MG, UNK
     Route: 041
     Dates: start: 2015
  2. PLAQUENIL [Concomitant]
     Active Substance: HYDROXYCHLOROQUINE SULFATE
  3. VERPAMIL [Concomitant]
     Active Substance: VERAPAMIL HYDROCHLORIDE
  4. ZINC. [Concomitant]
     Active Substance: ZINC
  5. PRIMIDONE. [Concomitant]
     Active Substance: PRIMIDONE
  6. MARINOL [Concomitant]
     Active Substance: DRONABINOL
  7. XANAX [Concomitant]
     Active Substance: ALPRAZOLAM

REACTIONS (2)
  - Feeling abnormal [Unknown]
  - Headache [Unknown]

NARRATIVE: CASE EVENT DATE: 201705
